FAERS Safety Report 5777941-6 (Version None)
Quarter: 2008Q2

REPORT INFORMATION
  Report Type: 
  Country: None (occurrence: None)
  Receive Date: 20080618
  Receipt Date: 20080618
  Transmission Date: 20081010
  Serious: Yes (Hospitalization)
  Sender: FDA-Public Use
  Company Number: None

PATIENT
  Age: 94 Year
  Sex: Male
  Weight: 53.5244 kg

DRUGS (2)
  1. DIGOXIN [Suspect]
     Dosage: 0.125MG PO DAILY
     Route: 048
  2. METOPROLOL SUCCINATE [Suspect]

REACTIONS (3)
  - BRADYCARDIA [None]
  - HYPERKALAEMIA [None]
  - LETHARGY [None]
